FAERS Safety Report 24382102 (Version 1)
Quarter: 2024Q4

REPORT INFORMATION
  Report Type: Spontaneous
  Country: JP (occurrence: JP)
  Receive Date: 20241001
  Receipt Date: 20241001
  Transmission Date: 20250115
  Serious: Yes (Life-Threatening, Hospitalization)
  Sender: STRIDES
  Company Number: JP-STRIDES ARCOLAB LIMITED-2024SP012518

PATIENT
  Age: 30 Year
  Sex: Male

DRUGS (4)
  1. ATOMOXETINE [Suspect]
     Active Substance: ATOMOXETINE HYDROCHLORIDE
     Indication: Depression
     Dosage: 10 GRAM (250 EMPTY PACKS OF 40MG ATOMOXETINE)
     Route: 065
  2. FLUNITRAZEPAM [Concomitant]
     Active Substance: FLUNITRAZEPAM
     Indication: Depression
     Dosage: UNK
     Route: 065
  3. OLANZAPINE [Concomitant]
     Active Substance: OLANZAPINE
     Indication: Depression
     Dosage: UNK
     Route: 065
  4. HERBAL NOS [Concomitant]
     Active Substance: HERBALS
     Indication: Depression
     Dosage: UNK
     Route: 065

REACTIONS (8)
  - Cardiogenic shock [Recovered/Resolved]
  - Electrocardiogram QRS complex prolonged [Recovered/Resolved]
  - Electrocardiogram QT prolonged [Recovered/Resolved]
  - Ejection fraction decreased [Recovered/Resolved]
  - Seizure [Recovered/Resolved]
  - Intentional overdose [Unknown]
  - Suicide attempt [Recovered/Resolved]
  - Off label use [Unknown]
